FAERS Safety Report 17699113 (Version 1)
Quarter: 2020Q2

REPORT INFORMATION
  Report Type: Spontaneous
  Country: FR (occurrence: FR)
  Receive Date: 20200423
  Receipt Date: 20200423
  Transmission Date: 20200714
  Serious: Yes (Disabling)
  Sender: FDA-Public Use
  Company Number: FR-TEVA-2020-FR-1224135

PATIENT
  Age: 54 Year
  Sex: Male

DRUGS (1)
  1. OCTREOTIDE TEVA LP 30 MG [Suspect]
     Active Substance: OCTREOTIDE
     Indication: ENDOCRINE NEOPLASM

REACTIONS (8)
  - Impaired work ability [Recovered/Resolved]
  - Injection site oedema [Recovered/Resolved]
  - Pyrexia [Recovered/Resolved]
  - Product substitution issue [Unknown]
  - Gait disturbance [Recovered/Resolved]
  - Hypersensitivity [Recovered/Resolved]
  - Fatigue [Recovered/Resolved]
  - Pain in extremity [Recovered/Resolved]

NARRATIVE: CASE EVENT DATE: 202003
